FAERS Safety Report 13198114 (Version 1)
Quarter: 2017Q1

REPORT INFORMATION
  Report Type: Spontaneous
  Country: US (occurrence: US)
  Receive Date: 20170208
  Receipt Date: 20170208
  Transmission Date: 20170428
  Serious: No
  Sender: FDA-Public Use
  Company Number: US-AMGEN-USASP2017000997

PATIENT
  Age: 54 Year
  Sex: Male

DRUGS (2)
  1. NEULASTA [Suspect]
     Active Substance: PEGFILGRASTIM
     Indication: PRODUCT USED FOR UNKNOWN INDICATION
     Dosage: UNK
     Route: 065
  2. NEULASTA [Suspect]
     Active Substance: PEGFILGRASTIM
     Dosage: UNK
     Route: 065
     Dates: start: 201609

REACTIONS (7)
  - Myalgia [Unknown]
  - Erythema [Unknown]
  - Contusion [Unknown]
  - Pain [Unknown]
  - Local swelling [Unknown]
  - Mobility decreased [Unknown]
  - Muscle swelling [Unknown]
